FAERS Safety Report 24597141 (Version 5)
Quarter: 2025Q1

REPORT INFORMATION
  Report Type: Spontaneous
  Country: US (occurrence: US)
  Receive Date: 20241110
  Receipt Date: 20250115
  Transmission Date: 20250409
  Serious: Yes (Hospitalization, Other)
  Sender: SANOFI AVENTIS
  Company Number: US-SA-2024SA307502

PATIENT
  Age: 82 Year
  Sex: Female
  Weight: 51.36 kg

DRUGS (32)
  1. DUPIXENT [Suspect]
     Active Substance: DUPILUMAB
     Indication: Dermatitis atopic
     Dosage: 300 MG, QOW
     Route: 058
     Dates: start: 2021
  2. COLCHICINE [Suspect]
     Active Substance: COLCHICINE
  3. REVLIMID [Concomitant]
     Active Substance: LENALIDOMIDE
  4. ASPIRIN [Concomitant]
     Active Substance: ASPIRIN
  5. BIOTIN [Concomitant]
     Active Substance: BIOTIN
  6. CALCIUM [Concomitant]
     Active Substance: CALCIUM
  7. LEVOTHYROXINE SODIUM [Concomitant]
     Active Substance: LEVOTHYROXINE SODIUM
  8. FLUOROURACIL [Concomitant]
     Active Substance: FLUOROURACIL
  9. METRONIDAZOLE [Concomitant]
     Active Substance: METRONIDAZOLE
  10. PEPCID [Concomitant]
     Active Substance: FAMOTIDINE
  11. PROBIOTICS NOS [Concomitant]
     Active Substance: PROBIOTICS NOS
  12. VITAMIN D3 [Concomitant]
     Active Substance: CHOLECALCIFEROL
  13. FUROSEMIDE [Concomitant]
     Active Substance: FUROSEMIDE
  14. KLOR-CON M20 [Concomitant]
     Active Substance: POTASSIUM CHLORIDE
  15. PAXLOVID [Concomitant]
     Active Substance: NIRMATRELVIR\RITONAVIR
  16. SYNTHROID [Concomitant]
     Active Substance: LEVOTHYROXINE SODIUM
  17. VELCADE [Concomitant]
     Active Substance: BORTEZOMIB
  18. CYCLOSPORINE [Concomitant]
     Active Substance: CYCLOSPORINE
  19. OMEPRAZOLE [Concomitant]
     Active Substance: OMEPRAZOLE
  20. SENNA S [Concomitant]
     Active Substance: DOCUSATE SODIUM\SENNOSIDES
  21. CITRACAL + D3 [Concomitant]
  22. ASPIRIN [Concomitant]
     Active Substance: ASPIRIN
  23. METHYLPREDNISOLONE [Concomitant]
     Active Substance: METHYLPREDNISOLONE
  24. MIRALAX [Concomitant]
     Active Substance: POLYETHYLENE GLYCOL 3350
  25. DEXAMETHASONE [Concomitant]
     Active Substance: DEXAMETHASONE
  26. TRAZODONE HCL [Concomitant]
     Active Substance: TRAZODONE HYDROCHLORIDE
  27. ACYCLOVIR [Concomitant]
     Active Substance: ACYCLOVIR
  28. OXYCODONE HYDROCHLORIDE [Concomitant]
     Active Substance: OXYCODONE HYDROCHLORIDE
  29. COLCHICINE [Concomitant]
     Active Substance: COLCHICINE
  30. ASPIRIN [Concomitant]
     Active Substance: ASPIRIN
  31. PREDNISONE [Concomitant]
     Active Substance: PREDNISONE
  32. PEPCID [Concomitant]
     Active Substance: FAMOTIDINE

REACTIONS (7)
  - Fall [Recovering/Resolving]
  - Pelvic fracture [Recovering/Resolving]
  - Upper limb fracture [Recovering/Resolving]
  - Mobility decreased [Recovering/Resolving]
  - Gout [Unknown]
  - Fatigue [Unknown]
  - Diarrhoea [Unknown]

NARRATIVE: CASE EVENT DATE: 20241001
